FAERS Safety Report 8050260-3 (Version None)
Quarter: 2012Q1

REPORT INFORMATION
  Report Type: 
  Country: None (occurrence: None)
  Receive Date: 20120117
  Receipt Date: 20120104
  Transmission Date: 20120608
  Serious: Yes (Hospitalization, Other)
  Sender: FDA-Public Use
  Company Number: US-PFIZER INC-2012002996

PATIENT
  Sex: Female
  Weight: 74.8 kg

DRUGS (13)
  1. DILANTIN [Suspect]
     Dosage: 100 MG, 4X/DAY
  2. TOPAMAX [Suspect]
     Dosage: 100 MG, 2X/DAY
     Route: 048
     Dates: start: 20090101
  3. AMITRIPTYLINE [Concomitant]
     Indication: CONVULSION
     Dosage: UNK
  4. LEXAPRO [Concomitant]
     Indication: ANXIETY
  5. AMITRIPTYLINE [Concomitant]
     Indication: ANXIETY
  6. CITALOPRAM [Concomitant]
     Indication: CONVULSION
     Dosage: UNK
  7. CITALOPRAM [Concomitant]
     Indication: IMPAIRED DRIVING ABILITY
  8. TOPAMAX [Suspect]
     Dosage: 200 MG, 2X/DAY (TWO 100 MG TABLETS 2X/DAY)
  9. AMITRIPTYLINE [Concomitant]
     Indication: IMPAIRED DRIVING ABILITY
  10. DILANTIN [Suspect]
     Indication: CONVULSION
     Dosage: 50 MG, 2X/DAY
     Route: 048
     Dates: start: 20080101
  11. CITALOPRAM [Concomitant]
     Indication: ANXIETY
  12. LEXAPRO [Concomitant]
     Indication: CONVULSION
     Dosage: UNK
  13. LEXAPRO [Concomitant]
     Indication: IMPAIRED DRIVING ABILITY

REACTIONS (9)
  - GAIT DISTURBANCE [None]
  - DRUG LEVEL INCREASED [None]
  - CONVULSION [None]
  - DYSSTASIA [None]
  - ALOPECIA [None]
  - NAIL DISORDER [None]
  - DRUG LEVEL DECREASED [None]
  - DYSPNOEA [None]
  - DIZZINESS [None]
